FAERS Safety Report 5900320-5 (Version None)
Quarter: 2008Q3

REPORT INFORMATION
  Report Type: 
  Country: None (occurrence: None)
  Receive Date: 20080926
  Receipt Date: 20080924
  Transmission Date: 20090109
  Serious: Yes (Other)
  Sender: FDA-Public Use
  Company Number: B0538571A

PATIENT
  Age: 47 Year
  Sex: Male

DRUGS (3)
  1. CIGANON CQ1 [Suspect]
     Indication: SMOKING CESSATION THERAPY
     Dosage: 1PAT PER DAY
     Route: 062
     Dates: start: 20080913
  2. ANTIDIABETIC [Concomitant]
  3. ANTI-HYPERLIPIDEMIC [Concomitant]

REACTIONS (4)
  - ASTHMA [None]
  - CHOKING SENSATION [None]
  - COUGH [None]
  - SPUTUM DISCOLOURED [None]
